FAERS Safety Report 25205880 (Version 1)
Quarter: 2025Q2

REPORT INFORMATION
  Report Type: Spontaneous
  Country: US (occurrence: US)
  Receive Date: 20250417
  Receipt Date: 20250417
  Transmission Date: 20250716
  Serious: No
  Sender: IPSEN
  Company Number: US-IPSEN Group, Research and Development-2025-08445

PATIENT
  Sex: Male

DRUGS (4)
  1. ONIVYDE [Suspect]
     Active Substance: IRINOTECAN HYDROCHLORIDE
     Indication: Product used for unknown indication
     Route: 065
  2. FLUOROURACIL [Suspect]
     Active Substance: FLUOROURACIL
     Indication: Product used for unknown indication
     Route: 065
  3. FLUOROURACIL [Suspect]
     Active Substance: FLUOROURACIL
     Route: 065
  4. VITAMINS [Concomitant]
     Active Substance: VITAMINS

REACTIONS (1)
  - Micturition urgency [Unknown]
